FAERS Safety Report 14995008 (Version 1)
Quarter: 2018Q2

REPORT INFORMATION
  Report Type: Report from Study
  Country: CA (occurrence: CA)
  Receive Date: 20180611
  Receipt Date: 20180611
  Transmission Date: 20180711
  Serious: Yes (Other)
  Sender: FDA-Public Use
  Company Number: CA-ROCHE-2137621

PATIENT
  Sex: Male

DRUGS (3)
  1. ACTEMRA [Suspect]
     Active Substance: TOCILIZUMAB
     Indication: RHEUMATOID ARTHRITIS
     Route: 058
     Dates: start: 20180404
  2. NORVASC [Concomitant]
     Active Substance: AMLODIPINE BESYLATE
  3. INDAPAMIDE. [Concomitant]
     Active Substance: INDAPAMIDE

REACTIONS (1)
  - Rib fracture [Not Recovered/Not Resolved]
